FAERS Safety Report 8600790-8 (Version None)
Quarter: 2012Q3

REPORT INFORMATION
  Report Type: 
  Country: None (occurrence: None)
  Receive Date: 20120806
  Receipt Date: 20120721
  Transmission Date: 20120928
  Serious: Yes (Hospitalization)
  Sender: FDA-Public Use
  Company Number: FK201202135

PATIENT
  Age: 34 Year
  Sex: Female
  Weight: 68 kg

DRUGS (5)
  1. ONDANSETRON [Concomitant]
  2. XELODA [Concomitant]
  3. IRINOTECAN 20 MG/ML CONCENTRATE FOR SOLUTION FOR INFUSION(IRINOTECAN H [Suspect]
     Indication: COLON CANCER
     Dosage: 310 MG, INTRAVENOUS (NOT OTHERWISE SPECIFIED)
     Route: 042
     Dates: start: 20120718
  4. DEXAMETHASONE SODIUM PHOSPHATE [Concomitant]
  5. CHLORPRIMETON (CHLORPRIMETON MALEATE) [Concomitant]

REACTIONS (5)
  - DYSPNOEA [None]
  - ABDOMINAL PAIN [None]
  - RASH [None]
  - BLOOD PRESSURE INCREASED [None]
  - HOT FLUSH [None]
